FAERS Safety Report 19613593 (Version 1)
Quarter: 2021Q3

REPORT INFORMATION
  Report Type: Spontaneous
  Country: US (occurrence: US)
  Receive Date: 20210726
  Receipt Date: 20210726
  Transmission Date: 20211014
  Serious: Yes (Other)
  Sender: FDA-Public Use
  Company Number: None

PATIENT
  Age: 45 Year
  Sex: Female
  Weight: 76.5 kg

DRUGS (1)
  1. GENTLE LAXATIVE [Suspect]
     Active Substance: BISACODYL
     Indication: CONSTIPATION
     Route: 048
     Dates: start: 20210726, end: 20210726

REACTIONS (4)
  - Suspected product quality issue [None]
  - Hyperhidrosis [None]
  - Headache [None]
  - Virilism [None]

NARRATIVE: CASE EVENT DATE: 20210726
